FAERS Safety Report 19727714 (Version 1)
Quarter: 2021Q3

REPORT INFORMATION
  Report Type: Spontaneous
  Country: US (occurrence: US)
  Receive Date: 20210820
  Receipt Date: 20210820
  Transmission Date: 20211014
  Serious: No
  Sender: FDA-Public Use
  Company Number: US-BAUSCH-BL-2021-025176

PATIENT
  Age: 61 Year
  Sex: Female

DRUGS (2)
  1. ARESTIN [Suspect]
     Active Substance: MINOCYCLINE HYDROCHLORIDE
  2. ARESTIN [Suspect]
     Active Substance: MINOCYCLINE HYDROCHLORIDE
     Indication: PRODUCT USED FOR UNKNOWN INDICATION
     Dosage: APPROXIMATELY ONE WEEK AGO
     Route: 004
     Dates: start: 202107

REACTIONS (2)
  - Oral discomfort [Unknown]
  - Gingival pruritus [Unknown]

NARRATIVE: CASE EVENT DATE: 202107
